FAERS Safety Report 22130164 (Version 1)
Quarter: 2023Q1

REPORT INFORMATION
  Report Type: Spontaneous
  Country: US (occurrence: US)
  Receive Date: 20230323
  Receipt Date: 20230323
  Transmission Date: 20230418
  Serious: Yes (Life-Threatening, Hospitalization, Other)
  Sender: FDA-Public Use
  Company Number: US-LUPIN PHARMACEUTICALS INC.-2023-02194

PATIENT
  Age: 21 Year
  Sex: Male

DRUGS (1)
  1. BUPROPION [Suspect]
     Active Substance: BUPROPION
     Indication: Product used for unknown indication
     Dosage: UNK
     Route: 065

REACTIONS (9)
  - Cardiogenic shock [Recovering/Resolving]
  - Unresponsive to stimuli [Recovering/Resolving]
  - Seizure [Recovering/Resolving]
  - Arrhythmia [Recovering/Resolving]
  - Bundle branch block left [Recovering/Resolving]
  - Cardiotoxicity [Recovering/Resolving]
  - Hypokinesia [Recovering/Resolving]
  - Ejection fraction abnormal [Recovering/Resolving]
  - Overdose [Unknown]
